FAERS Safety Report 9692198 (Version 4)
Quarter: 2015Q3

REPORT INFORMATION
  Report Type: Report from Study
  Country: CA (occurrence: CA)
  Receive Date: 20131118
  Receipt Date: 20150925
  Transmission Date: 20151125
  Serious: Yes (Other)
  Sender: FDA-Public Use
  Company Number: CA-ROCHE-561358

PATIENT
  Age: 62 Year
  Sex: Female
  Weight: 70.3 kg

DRUGS (16)
  1. RITUXAN [Suspect]
     Active Substance: RITUXIMAB
     Route: 042
  2. PREDNISONE. [Concomitant]
     Active Substance: PREDNISONE
  3. MACROBID [Concomitant]
     Active Substance: NITROFURANTOIN\NITROFURANTOIN MONOHYDRATE
  4. RITUXAN [Suspect]
     Active Substance: RITUXIMAB
     Route: 042
  5. ALENDRONATE [Concomitant]
     Active Substance: ALENDRONATE SODIUM
  6. SOLU-MEDROL [Concomitant]
     Active Substance: METHYLPREDNISOLONE SODIUM SUCCINATE
     Indication: PREMEDICATION
     Dosage: FORM: POWDER FOR SOLUTION
     Route: 030
  7. SIMVASTATIN. [Concomitant]
     Active Substance: SIMVASTATIN
  8. OMEGA 3 [Concomitant]
     Active Substance: OMEGA-3 FATTY ACIDS
  9. PROLIA [Concomitant]
     Active Substance: DENOSUMAB
  10. DIPHENHYDRAMINE HYDROCHLORIDE. [Concomitant]
     Active Substance: DIPHENHYDRAMINE HYDROCHLORIDE
     Indication: PREMEDICATION
     Route: 048
     Dates: start: 20120813, end: 20120813
  11. RITUXAN [Suspect]
     Active Substance: RITUXIMAB
     Indication: RHEUMATOID ARTHRITIS
     Route: 042
  12. BENADRYL [Concomitant]
     Active Substance: DIPHENHYDRAMINE HYDROCHLORIDE
     Indication: PREMEDICATION
     Route: 065
  13. ACETAMINOPHEN. [Concomitant]
     Active Substance: ACETAMINOPHEN
     Indication: PREMEDICATION
     Route: 048
     Dates: start: 20070314, end: 20120813
  14. METHYLPREDNISOLONE. [Concomitant]
     Active Substance: METHYLPREDNISOLONE
     Indication: PREMEDICATION
     Route: 042
     Dates: start: 20120813, end: 20120813
  15. VITAMIN C [Concomitant]
     Active Substance: ASCORBIC ACID
  16. MELOXICAM. [Concomitant]
     Active Substance: MELOXICAM

REACTIONS (5)
  - Urinary tract infection [Unknown]
  - Peripheral swelling [Unknown]
  - Infusion related reaction [Recovered/Resolved]
  - Nasopharyngitis [Not Recovered/Not Resolved]
  - Headache [Not Recovered/Not Resolved]

NARRATIVE: CASE EVENT DATE: 20070314
